FAERS Safety Report 10007063 (Version 2)
Quarter: 2014Q1

REPORT INFORMATION
  Report Type: Spontaneous
  Country: US (occurrence: US)
  Receive Date: 20140313
  Receipt Date: 20140313
  Transmission Date: 20141002
  Serious: No
  Sender: FDA-Public Use
  Company Number: US-GILEAD-2012-0065988

PATIENT
  Sex: Female

DRUGS (5)
  1. LETAIRIS [Suspect]
     Indication: PULMONARY ARTERIAL HYPERTENSION
     Dosage: 10 MG, QD
     Route: 048
     Dates: start: 20120821
  2. LETAIRIS [Suspect]
     Indication: SYSTEMIC SCLEROSIS
     Dosage: 5 UNK, UNK
     Route: 048
  3. ADCIRCA [Concomitant]
  4. SILDENAFIL [Concomitant]
  5. SILDENAFIL CITRATE [Concomitant]

REACTIONS (3)
  - Deafness unilateral [Unknown]
  - Eustachian tube obstruction [Unknown]
  - Nasal congestion [Unknown]
